FAERS Safety Report 4996813-8 (Version None)
Quarter: 2006Q2

REPORT INFORMATION
  Report Type: 
  Country: None (occurrence: None)
  Receive Date: 20060509
  Receipt Date: 20060117
  Transmission Date: 20061013
  Serious: Yes (Hospitalization)
  Sender: FDA-Public Use
  Company Number: US-MERCK-0601USA02183

PATIENT
  Age: 72 Year
  Sex: Male

DRUGS (1)
  1. VIOXX [Suspect]
     Route: 048
     Dates: start: 20000601, end: 20011111

REACTIONS (8)
  - CEREBROVASCULAR ACCIDENT [None]
  - CORONARY ARTERY DISEASE [None]
  - DEEP VEIN THROMBOSIS [None]
  - DIZZINESS [None]
  - POLLAKIURIA [None]
  - PROSTATE CANCER [None]
  - SPINAL DISORDER [None]
  - URINARY TRACT INFECTION [None]
